FAERS Safety Report 7164035-0 (Version None)
Quarter: 2010Q4

REPORT INFORMATION
  Report Type: 
  Country: None (occurrence: None)
  Receive Date: 20101215
  Receipt Date: 20101206
  Transmission Date: 20110411
  Serious: Yes (Other)
  Sender: FDA-Public Use
  Company Number: B0685657A

PATIENT
  Sex: Female

DRUGS (1)
  1. TYVERB [Suspect]
     Indication: BREAST CANCER METASTATIC
     Dosage: 1500MG PER DAY
     Route: 065
     Dates: start: 20100906

REACTIONS (9)
  - DIARRHOEA [None]
  - EATING DISORDER [None]
  - FATIGUE [None]
  - GOUT [None]
  - NAUSEA [None]
  - PSORIASIS [None]
  - SYNCOPE [None]
  - WOUND [None]
  - WOUND SECRETION [None]
